FAERS Safety Report 23196423 (Version 1)
Quarter: 2023Q4

REPORT INFORMATION
  Report Type: Spontaneous
  Country: US (occurrence: None)
  Receive Date: 20231116
  Receipt Date: 20231116
  Transmission Date: 20240110
  Serious: No
  Sender: FDA-Public Use
  Company Number: None

PATIENT
  Age: 37 Year
  Sex: Female
  Weight: 78.75 kg

DRUGS (1)
  1. ROHTO ALL-IN-ONE [Suspect]
     Active Substance: HYPROMELLOSES\TETRAHYDROZOLINE HYDROCHLORIDE\ZINC SULFATE
     Indication: Multiple allergies
     Dosage: 1 DROP OPHTHALMIC
     Route: 047
     Dates: start: 20231111, end: 20231111

REACTIONS (1)
  - Eye irritation [None]

NARRATIVE: CASE EVENT DATE: 20231111
